FAERS Safety Report 9045087 (Version 1)
Quarter: 2013Q1

REPORT INFORMATION
  Report Type: Report from Study
  Country: US (occurrence: US)
  Receive Date: 20130130
  Receipt Date: 20130130
  Transmission Date: 20140127
  Serious: Yes (Hospitalization, Other)
  Sender: FDA-Public Use
  Company Number: US-ABBOTT-12P-163-0961997-00

PATIENT
  Sex: Female
  Weight: 80.81 kg

DRUGS (4)
  1. HUMIRA 40 MG/0.8 ML PEN [Suspect]
     Indication: RHEUMATOID ARTHRITIS
     Route: 058
     Dates: start: 201008, end: 201012
  2. HUMIRA 40 MG/0.8 ML PEN [Suspect]
     Dates: start: 201105, end: 201207
  3. METHOTREXATE [Concomitant]
     Indication: PRODUCT USED FOR UNKNOWN INDICATION
  4. FLURBIPROFEN [Concomitant]
     Indication: INFLAMMATION

REACTIONS (2)
  - Pancreatitis [Unknown]
  - Drug ineffective [Unknown]
